FAERS Safety Report 11709439 (Version 1)
Quarter: 2015Q4

REPORT INFORMATION
  Report Type: Spontaneous
  Country: US (occurrence: US)
  Receive Date: 20151104
  Receipt Date: 20151104
  Transmission Date: 20160304
  Serious: No
  Sender: FDA-Public Use
  Company Number: US-ELI_LILLY_AND_COMPANY-US201109002966

PATIENT
  Sex: Female

DRUGS (23)
  1. FORTEO [Suspect]
     Active Substance: TERIPARATIDE
     Dosage: 20 UG, UNK
  2. ZOLPIDEM [Concomitant]
     Active Substance: ZOLPIDEM\ZOLPIDEM TARTRATE
     Dosage: 5 MG, EACH EVENING
     Route: 048
     Dates: start: 20110525
  3. FISH OIL [Concomitant]
     Active Substance: FISH OIL
     Dosage: 1000 MG, BID
     Route: 048
     Dates: start: 20090112
  4. METFORMIN [Concomitant]
     Active Substance: METFORMIN HYDROCHLORIDE
     Dosage: 1000 MG, BID
     Route: 048
     Dates: start: 20110207
  5. CALCIUM [Concomitant]
     Active Substance: CALCIUM
     Dosage: 600 MG, TID
     Route: 048
     Dates: start: 20090128
  6. MULTIVIT                           /07504101/ [Concomitant]
     Dosage: 1 DF, QD
     Route: 048
     Dates: start: 20090326
  7. AMMONIUM LACTATE. [Concomitant]
     Active Substance: AMMONIUM LACTATE
     Dosage: UNK, BID
     Dates: start: 20110427
  8. FENOFIBRATE. [Concomitant]
     Active Substance: FENOFIBRATE
     Dosage: 200 MG, QD
     Route: 048
     Dates: start: 20090923
  9. OMEPRAZOLE. [Concomitant]
     Active Substance: OMEPRAZOLE
     Dosage: 20 MG, EACH MORNING
     Dates: start: 20110709
  10. WARFARIN [Concomitant]
     Active Substance: WARFARIN
     Dosage: 2 MG, QOD
     Route: 048
     Dates: start: 20110805
  11. FUROSEMIDE. [Concomitant]
     Active Substance: FUROSEMIDE
     Dosage: 40 MG, QD
     Route: 048
     Dates: start: 20090112
  12. METOPROLOL [Concomitant]
     Active Substance: METOPROLOL
     Dosage: 50 MG, QD
     Route: 048
     Dates: start: 20090617
  13. FORTEO [Suspect]
     Active Substance: TERIPARATIDE
     Dosage: 20 UG, UNK
     Dates: start: 20110823, end: 20110824
  14. MAGNESIUM OXIDE. [Concomitant]
     Active Substance: MAGNESIUM OXIDE
     Dosage: 400 MG, QD
     Route: 048
     Dates: start: 20110714
  15. ELDERTONIC [Concomitant]
     Dosage: 15 ML, TID
     Route: 048
     Dates: start: 20110902
  16. NIASPAN [Concomitant]
     Active Substance: NIACIN
     Dosage: 500 MG, QD
     Route: 048
     Dates: start: 20110311
  17. DIGOXIN. [Concomitant]
     Active Substance: DIGOXIN
     Dosage: 0.125 MG, QD
     Route: 048
     Dates: start: 20090112
  18. SPIRIVA [Concomitant]
     Active Substance: TIOTROPIUM BROMIDE MONOHYDRATE
     Dosage: 18 UG, QD
     Route: 048
     Dates: start: 20090819
  19. ADVAIR HFA [Concomitant]
     Active Substance: FLUTICASONE PROPIONATE\SALMETEROL XINAFOATE
     Dosage: 1 DF, BID
     Dates: start: 20110110
  20. WARFARIN [Concomitant]
     Active Substance: WARFARIN
     Dosage: 2.5 MG, QOD
  21. POTASSIUM CHLORIDE. [Concomitant]
     Active Substance: POTASSIUM CHLORIDE
     Dosage: 10 MEQ, BID
     Dates: start: 20090112
  22. SIMVASTATIN. [Concomitant]
     Active Substance: SIMVASTATIN
     Dosage: 10 MG, QD
     Route: 048
     Dates: start: 20090731
  23. VITAMIN D2 [Concomitant]
     Active Substance: ERGOCALCIFEROL
     Dosage: 50000 IU, QD
     Route: 048
     Dates: start: 20101130

REACTIONS (2)
  - Rash [Recovered/Resolved]
  - Rash macular [Recovered/Resolved]

NARRATIVE: CASE EVENT DATE: 20110824
